FAERS Safety Report 24575933 (Version 2)
Quarter: 2024Q4

REPORT INFORMATION
  Report Type: Spontaneous
  Country: US (occurrence: US)
  Receive Date: 20241104
  Receipt Date: 20241122
  Transmission Date: 20250115
  Serious: Yes (Other)
  Sender: REGENERON
  Company Number: US-REGENERON PHARMACEUTICALS, INC.-2024-145563

PATIENT
  Sex: Female

DRUGS (6)
  1. EYLEA [Suspect]
     Active Substance: AFLIBERCEPT
     Indication: Neovascular age-related macular degeneration
     Dosage: 2 MG, EVERY 4-6 WEEKS LEFT EYE, STRENGTH: 2 MG/0.05 ML FORMULATION: EYLEA 2 MG PREFILLED SYRINGE (PF
  2. EYLEA [Suspect]
     Active Substance: AFLIBERCEPT
     Dosage: 2 MG, EVERY 4-6 WEEKS LEFT EYE, STRENGTH: 2 MG/0.05 ML FORMULATION: EYLEA 2 MG PREFILLED SYRINGE (PF
     Dates: start: 20241022
  3. EYLEA [Suspect]
     Active Substance: AFLIBERCEPT
     Dosage: 2 MG, EVERY 4-6 WEEKS LEFT EYE, STRENGTH: 2 MG/0.05 ML FORMULATION: EYLEA 2 MG PREFILLED SYRINGE (PF
  4. PANTOPRAZOLE [Concomitant]
     Active Substance: PANTOPRAZOLE
     Indication: Product used for unknown indication
  5. LEVOTHYROXINE [Concomitant]
     Active Substance: LEVOTHYROXINE
     Indication: Product used for unknown indication
     Dosage: UNK
  6. ATORVASTATIN [Concomitant]
     Active Substance: ATORVASTATIN
     Indication: Product used for unknown indication
     Dosage: UNK

REACTIONS (2)
  - Blindness transient [Recovering/Resolving]
  - Non-infectious endophthalmitis [Recovering/Resolving]

NARRATIVE: CASE EVENT DATE: 20241001
